FAERS Safety Report 9944851 (Version 1)
Quarter: 2014Q1

REPORT INFORMATION
  Report Type: Spontaneous
  Country: US (occurrence: US)
  Receive Date: 20140303
  Receipt Date: 20140303
  Transmission Date: 20141002
  Serious: No
  Sender: FDA-Public Use
  Company Number: US-ABBVIE-13P-163-1056380-00

PATIENT
  Age: 15 Year
  Sex: Male
  Weight: 68.1 kg

DRUGS (3)
  1. HUMIRA [Suspect]
     Indication: COLITIS ULCERATIVE
     Dosage: ONCE
     Dates: start: 20130221, end: 20130221
  2. METHOTREXATE [Concomitant]
     Indication: COLITIS ULCERATIVE
  3. VSL3 [Concomitant]
     Indication: PROBIOTIC THERAPY

REACTIONS (3)
  - Off label use [Not Recovered/Not Resolved]
  - Device malfunction [Unknown]
  - Incorrect dose administered [Unknown]
